FAERS Safety Report 4700185-3 (Version None)
Quarter: 2005Q2

REPORT INFORMATION
  Report Type: 
  Country: None (occurrence: None)
  Receive Date: 20050627
  Receipt Date: 20050520
  Transmission Date: 20051028
  Serious: Yes (Hospitalization, Other)
  Sender: FDA-Public Use
  Company Number: PHEH2005US05858

PATIENT
  Age: 16 Year
  Sex: Female

DRUGS (6)
  1. PAMIDRONATE DISODIUM [Suspect]
     Indication: FIBROUS DYSPLASIA OF BONE
     Dosage: 60 MG, PRN
     Dates: end: 20050407
  2. CELEBREX [Suspect]
     Indication: FIBROUS DYSPLASIA OF BONE
     Dosage: UNK, UNK
     Dates: start: 20041027
  3. DDAVP /USA/ [Concomitant]
     Indication: ENURESIS
     Dosage: 0.1 MG, QHS
  4. DETROL - SLOW RELEASE [Concomitant]
     Indication: INCONTINENCE
     Dosage: 4 MG, QD
     Dates: start: 20021223
  5. SONATA [Concomitant]
     Indication: INSOMNIA
     Dosage: 10 MG, QHS
     Dates: start: 20041027
  6. EFFEXOR [Concomitant]
     Indication: DEPRESSION
     Dosage: 150 MG, QD
     Dates: start: 20041027

REACTIONS (19)
  - ANAEMIA [None]
  - BLOOD PRODUCT TRANSFUSION [None]
  - BONE MARROW DEPRESSION [None]
  - CELLULITIS [None]
  - DISCOMFORT [None]
  - ECCHYMOSIS [None]
  - FALL [None]
  - HAEMATOCRIT DECREASED [None]
  - HAEMOGLOBIN DECREASED [None]
  - HEADACHE [None]
  - HUMERUS FRACTURE [None]
  - INFLAMMATION [None]
  - LOSS OF CONSCIOUSNESS [None]
  - PAIN [None]
  - RETICULOCYTE COUNT DECREASED [None]
  - SINUS TACHYCARDIA [None]
  - SWELLING [None]
  - SYNCOPE [None]
  - VISUAL FIELD DEFECT [None]
